FAERS Safety Report 7121850-7 (Version None)
Quarter: 2010Q4

REPORT INFORMATION
  Report Type: 
  Country: None (occurrence: None)
  Receive Date: 20101124
  Receipt Date: 20101118
  Transmission Date: 20110411
  Serious: Yes (Hospitalization)
  Sender: FDA-Public Use
  Company Number: US-SANOFI-AVENTIS-2010SA063966

PATIENT
  Age: 85 Year
  Sex: Male

DRUGS (3)
  1. SOLOSTAR [Suspect]
     Route: 058
     Dates: start: 20100916
  2. LANTUS [Suspect]
     Dosage: DOSE:15 UNIT(S)
     Route: 058
     Dates: start: 20100801
  3. LANTUS [Suspect]

REACTIONS (2)
  - ATRIAL FIBRILLATION [None]
  - BLOOD GLUCOSE INCREASED [None]
